FAERS Safety Report 25575201 (Version 1)
Quarter: 2025Q3

REPORT INFORMATION
  Report Type: Report from Study
  Country: CO (occurrence: CO)
  Receive Date: 20250718
  Receipt Date: 20250718
  Transmission Date: 20251020
  Serious: Yes (Hospitalization)
  Sender: ABBVIE
  Company Number: CO-JNJFOC-20250636218

PATIENT
  Age: 56 Year
  Sex: Male
  Weight: 55 kg

DRUGS (1)
  1. IMBRUVICA [Suspect]
     Active Substance: IBRUTINIB
     Indication: Marginal zone lymphoma
     Route: 048
     Dates: start: 20221112, end: 20250708

REACTIONS (1)
  - Marginal zone lymphoma [Unknown]

NARRATIVE: CASE EVENT DATE: 20250501
